FAERS Safety Report 19965364 (Version 2)
Quarter: 2021Q4

REPORT INFORMATION
  Report Type: Spontaneous
  Country: US (occurrence: US)
  Receive Date: 20211018
  Receipt Date: 20211027
  Transmission Date: 20220303
  Serious: Yes (Other)
  Sender: FDA-Public Use
  Company Number: US-ABBVIE-21K-163-4119316-00

PATIENT
  Age: 5 Month
  Sex: Female
  Weight: 6.9 kg

DRUGS (7)
  1. CREON [Suspect]
     Active Substance: PANCRELIPASE AMYLASE\PANCRELIPASE LIPASE\PANCRELIPASE PROTEASE
     Indication: Pancreatic failure
     Dosage: 3 CAPSULES BEFORE FEEDING
     Route: 048
     Dates: start: 20210624
  2. CREON [Suspect]
     Active Substance: PANCRELIPASE AMYLASE\PANCRELIPASE LIPASE\PANCRELIPASE PROTEASE
     Dosage: THREE CAPSULES BEFORE FEEDING AND ONE CAPSULE AT NIGHT BEFORE FEEDING
     Route: 048
  3. OMEPRAZOLE [Concomitant]
     Active Substance: OMEPRAZOLE
     Indication: Gastrooesophageal reflux disease
  4. ALBUTEROL [Concomitant]
     Active Substance: ALBUTEROL
     Indication: Cystic fibrosis
  5. RELIZORB [Concomitant]
     Indication: Pancreatic failure
  6. PULMICORT TURBUHALER [Concomitant]
     Active Substance: BUDESONIDE
     Indication: Cystic fibrosis
  7. MVW COMPLETE FORMULATION [Concomitant]
     Indication: Vitamin supplementation

REACTIONS (1)
  - Faeces discoloured [Recovering/Resolving]

NARRATIVE: CASE EVENT DATE: 20210909
